FAERS Safety Report 7512176-8 (Version None)
Quarter: 2011Q2

REPORT INFORMATION
  Report Type: 
  Country: None (occurrence: None)
  Receive Date: 20110531
  Receipt Date: 20110524
  Transmission Date: 20111010
  Serious: Yes (Hospitalization)
  Sender: FDA-Public Use
  Company Number: CA-PFIZER INC-2011076324

PATIENT
  Age: 27 Year
  Sex: Male

DRUGS (7)
  1. LYRICA [Suspect]
     Indication: BACK PAIN
  2. NAPROXEN [Concomitant]
     Indication: NEURITIS
     Dosage: UNK
     Dates: end: 20110401
  3. FLEXERIL [Concomitant]
     Dosage: UNK
  4. LYRICA [Suspect]
     Indication: PAIN IN EXTREMITY
     Dosage: 100 MG, 2X/DAY
     Dates: start: 20101101, end: 20110401
  5. ACETAMINOPHEN [Concomitant]
     Indication: PAIN
     Dosage: UNK
  6. CODEINE [Concomitant]
     Indication: PAIN
     Dosage: UNK
     Dates: end: 20110401
  7. APO-CYCLOBENZAPRINE [Concomitant]
     Indication: SLEEP DISORDER
     Dosage: UNK
     Dates: end: 20110401

REACTIONS (4)
  - HYPOAESTHESIA [None]
  - PARAESTHESIA [None]
  - NEOPLASM [None]
  - MUSCLE SPASMS [None]
